FAERS Safety Report 4409688-2 (Version None)
Quarter: 2004Q3

REPORT INFORMATION
  Report Type: 
  Country: None (occurrence: None)
  Receive Date: 20040727
  Receipt Date: 20040715
  Transmission Date: 20050211
  Serious: No
  Sender: FDA-Public Use
  Company Number: 2004UW14693

PATIENT
  Sex: Male

DRUGS (6)
  1. CRESTOR [Suspect]
     Dosage: 10 MG DAILY PO
     Route: 048
  2. LIPITOR [Concomitant]
  3. ZOCOR [Concomitant]
  4. VALPROIC ACID [Concomitant]
  5. TRILEPTAL [Concomitant]
  6. CAPTOPRIL [Concomitant]

REACTIONS (3)
  - CEREBROVASCULAR ACCIDENT [None]
  - CONSTIPATION [None]
  - SOMNOLENCE [None]
